FAERS Safety Report 11836073 (Version 1)
Quarter: 2015Q4

REPORT INFORMATION
  Report Type: Spontaneous
  Country: CA (occurrence: CA)
  Receive Date: 20151215
  Receipt Date: 20151215
  Transmission Date: 20160305
  Serious: Yes (Death)
  Sender: FDA-Public Use
  Company Number: CA-VIIV HEALTHCARE LIMITED-CA2015GSK175669

PATIENT
  Age: 60 Year
  Sex: Male

DRUGS (3)
  1. KIVEXA [Suspect]
     Active Substance: ABACAVIR SULFATE\LAMIVUDINE
     Indication: HIV INFECTION
     Dosage: UNK
  2. RITONAVIR. [Suspect]
     Active Substance: RITONAVIR
     Indication: PRODUCT USED FOR UNKNOWN INDICATION
     Dosage: UNK
  3. ATAZANAVIR [Suspect]
     Active Substance: ATAZANAVIR
     Indication: PRODUCT USED FOR UNKNOWN INDICATION
     Dosage: UNK

REACTIONS (1)
  - Cardiovascular disorder [Fatal]
